FAERS Safety Report 13642435 (Version 1)
Quarter: 2017Q2

REPORT INFORMATION
  Report Type: Spontaneous
  Country: US (occurrence: US)
  Receive Date: 20170612
  Receipt Date: 20170612
  Transmission Date: 20170830
  Serious: Yes (Other)
  Sender: FDA-Public Use
  Company Number: US-BEH-2017081074

PATIENT
  Sex: Male
  Weight: 90.7 kg

DRUGS (33)
  1. TESSALON [Concomitant]
     Active Substance: BENZONATATE
  2. MESTINON [Concomitant]
     Active Substance: PYRIDOSTIGMINE BROMIDE
  3. ELIQUIS [Concomitant]
     Active Substance: APIXABAN
  4. VITAMIN C [Concomitant]
     Active Substance: ASCORBIC ACID
  5. TURMERIC                           /01079602/ [Concomitant]
     Active Substance: HERBALS\TURMERIC
  6. VYTORIN [Concomitant]
     Active Substance: EZETIMIBE\SIMVASTATIN
  7. CLARITIN [Concomitant]
     Active Substance: LORATADINE
  8. HEPARIN [Concomitant]
     Active Substance: HEPARIN SODIUM
  9. LASIX [Concomitant]
     Active Substance: FUROSEMIDE
  10. EPIPEN [Concomitant]
     Active Substance: EPINEPHRINE
  11. AZATHIOPRINE. [Concomitant]
     Active Substance: AZATHIOPRINE
  12. VITAMIN B12 [Concomitant]
     Active Substance: CYANOCOBALAMIN
  13. NORMAL SALINE [Concomitant]
     Active Substance: SODIUM CHLORIDE
  14. CREON [Concomitant]
     Active Substance: PANCRELIPASE AMYLASE\PANCRELIPASE LIPASE\PANCRELIPASE PROTEASE
  15. PROVENTIL [Concomitant]
     Active Substance: ALBUTEROL
  16. NITROGLYCERIN. [Concomitant]
     Active Substance: NITROGLYCERIN
  17. PYRIDOSTIGMINE [Concomitant]
     Active Substance: PYRIDOSTIGMINE
  18. PRIVIGEN [Suspect]
     Active Substance: HUMAN IMMUNOGLOBULIN G
     Dosage: UNK
     Route: 042
  19. ALDACTONE [Concomitant]
     Active Substance: SPIRONOLACTONE
  20. PRIMIDONE. [Concomitant]
     Active Substance: PRIMIDONE
  21. AMIODARONE [Concomitant]
     Active Substance: AMIODARONE
  22. NEXIUM [Concomitant]
     Active Substance: ESOMEPRAZOLE MAGNESIUM
  23. SODIUM CHLORIDE. [Concomitant]
     Active Substance: SODIUM CHLORIDE
  24. DIPHENHYDRAMINE. [Concomitant]
     Active Substance: DIPHENHYDRAMINE
  25. ASPIRIN. [Concomitant]
     Active Substance: ASPIRIN
  26. SERTRALINE [Concomitant]
     Active Substance: SERTRALINE HYDROCHLORIDE
  27. ACETAMINOPHEN. [Concomitant]
     Active Substance: ACETAMINOPHEN
  28. MULTIVITAMINS [Concomitant]
     Active Substance: VITAMINS
  29. PRIVIGEN [Suspect]
     Active Substance: HUMAN IMMUNOGLOBULIN G
     Indication: MYASTHENIA GRAVIS
     Dosage: 400 MG/KG, EVERY 4 WEEKS
     Route: 042
     Dates: start: 20161109
  30. FLONASE [Concomitant]
     Active Substance: FLUTICASONE PROPIONATE
  31. VALACYCLOVIR [Concomitant]
     Active Substance: VALACYCLOVIR HYDROCHLORIDE
  32. LOSARTAN. [Concomitant]
     Active Substance: LOSARTAN
  33. VITAMIN D3 [Concomitant]
     Active Substance: CHOLECALCIFEROL

REACTIONS (3)
  - Heart rate decreased [Unknown]
  - Atrial fibrillation [Unknown]
  - Dizziness [Unknown]
